FAERS Safety Report 10412812 (Version 1)
Quarter: 2014Q3

REPORT INFORMATION
  Report Type: Spontaneous
  Country: US (occurrence: None)
  Receive Date: 20140825
  Receipt Date: 20140825
  Transmission Date: 20150326
  Serious: Yes (Other)
  Sender: FDA-Public Use
  Company Number: 2010S1000490

PATIENT
  Age: 63 Year
  Sex: Male

DRUGS (5)
  1. EFFEXOR [Concomitant]
     Active Substance: VENLAFAXINE HYDROCHLORIDE
  2. TRIAZOLAM. [Concomitant]
     Active Substance: TRIAZOLAM
  3. PHOSPHO-SODA [Suspect]
     Active Substance: SODIUM PHOSPHATE, DIBASIC\SODIUM PHOSPHATE, MONOBASIC
     Indication: COLONOSCOPY
     Route: 048
     Dates: start: 19980603
  4. ATENOLOL. [Concomitant]
     Active Substance: ATENOLOL
  5. CHLORTHALIDONE. [Concomitant]
     Active Substance: CHLORTHALIDONE

REACTIONS (20)
  - Renal failure chronic [None]
  - Prostatic disorder [None]
  - Dysuria [None]
  - Sleep disorder [None]
  - Neuritis [None]
  - Gastric ulcer [None]
  - Urethral stenosis [None]
  - Paraesthesia [None]
  - Radiculitis [None]
  - Memory impairment [None]
  - Bladder diverticulum [None]
  - Obstructive uropathy [None]
  - Neuralgia [None]
  - Hypertonic bladder [None]
  - Gastritis [None]
  - Hiatus hernia [None]
  - Cognitive disorder [None]
  - Hypoaesthesia [None]
  - Nephropathy [None]
  - Hypertension [None]

NARRATIVE: CASE EVENT DATE: 2003
